FAERS Safety Report 9631788 (Version 3)
Quarter: 2014Q1

REPORT INFORMATION
  Report Type: Spontaneous
  Country: IT (occurrence: IT)
  Receive Date: 20131018
  Receipt Date: 20140129
  Transmission Date: 20141002
  Serious: Yes (Other)
  Sender: FDA-Public Use
  Company Number: IT-AMGEN-ITASP2013072616

PATIENT
  Age: 62 Year
  Sex: Female
  Weight: 68 kg

DRUGS (9)
  1. VECTIBIX [Suspect]
     Indication: COLON CANCER STAGE IV
     Dosage: 400 MG, CYCLICAL (6 MG/KG)
     Route: 042
     Dates: start: 20130826, end: 20140113
  2. FLUOXETINE HYDROCHLORIDE [Concomitant]
     Indication: DEPRESSION
     Dosage: 30 MG, UNK
     Route: 048
     Dates: start: 20100101, end: 20140113
  3. PARIET [Concomitant]
     Indication: GASTROOESOPHAGEAL REFLUX DISEASE
     Dosage: 20 MG, UNK
     Route: 048
     Dates: start: 20100101, end: 20140113
  4. PARIET [Concomitant]
     Indication: HIATUS HERNIA
  5. XANAX [Concomitant]
     Indication: ANXIETY
     Dosage: 0.5 MG, UNK
     Route: 048
     Dates: start: 20100101, end: 20140113
  6. DEXAMETHASONE PHOSPHATE [Concomitant]
     Indication: NAUSEA
     Dosage: 8 MG, UNK
     Route: 042
     Dates: start: 20130826, end: 20130930
  7. TRIMETON                           /00072502/ [Concomitant]
     Indication: HYPERSENSITIVITY
     Dosage: 10 MG, UNK
     Route: 042
     Dates: start: 20130826, end: 20140113
  8. TRIMETON                           /00072502/ [Concomitant]
     Indication: PREMEDICATION
  9. DECADRON                           /00016001/ [Concomitant]
     Indication: PREMEDICATION
     Dosage: 8 MG, UNK
     Route: 048
     Dates: start: 20130826, end: 20140113

REACTIONS (1)
  - Dermatitis acneiform [Recovering/Resolving]
